FAERS Safety Report 7715632-2 (Version None)
Quarter: 2011Q3

REPORT INFORMATION
  Report Type: 
  Country: None (occurrence: None)
  Receive Date: 20110829
  Receipt Date: 20110817
  Transmission Date: 20111222
  Serious: Yes (Death, Hospitalization)
  Sender: FDA-Public Use
  Company Number: US-ROCHE-788965

PATIENT
  Sex: Male
  Weight: 76.7 kg

DRUGS (29)
  1. AVASTIN [Suspect]
     Indication: COLORECTAL CANCER
     Dosage: 410 MG, Q2W
     Route: 042
     Dates: start: 20110516, end: 20110606
  2. IRINOTECAN HCL [Suspect]
     Indication: COLORECTAL CANCER
     Dosage: 250 MG, 1/WEEK
     Route: 042
     Dates: start: 20110516, end: 20110614
  3. FAMOTIDINE [Concomitant]
     Dosage: 20 MG, 1/WEEK
     Route: 042
     Dates: start: 20110516, end: 20110614
  4. DIPHENHYDRAMINE HCL [Concomitant]
     Dosage: 25 MG, 1/WEEK
     Route: 042
     Dates: start: 20110516, end: 20110614
  5. CETUXIMAB [Suspect]
     Dosage: 500 MG, 1/WEEK
     Route: 042
     Dates: start: 20110523, end: 20110614
  6. ALOXI [Concomitant]
     Dosage: 0.25 MG, 1/WEEK
     Route: 042
     Dates: start: 20110516, end: 20110614
  7. MICARDIS HCT [Concomitant]
     Indication: HYPERTENSION
     Dosage: 1.0 UNK, QD
     Route: 048
     Dates: end: 20110624
  8. CETUXIMAB [Suspect]
     Dosage: 800 MG, UNK
     Route: 042
     Dates: start: 20110516, end: 20110614
  9. BENADRYL [Concomitant]
     Dosage: 5 ML, QID
     Route: 048
     Dates: start: 20110621, end: 20110624
  10. TOPROL-XL [Concomitant]
     Indication: HYPERTENSION
     Dosage: 100 MG, QD
     Route: 048
     Dates: end: 20110624
  11. ATROPINE [Concomitant]
     Dosage: 0.4 MG, 1/WEEK
     Route: 040
     Dates: start: 20110516, end: 20110614
  12. MEGACE [Concomitant]
     Dosage: 625 MG/ML, QD
     Route: 048
     Dates: start: 20110621, end: 20110624
  13. NEUPOGEN [Concomitant]
  14. DEXAMETHASONE [Suspect]
     Indication: CHEMOTHERAPY
     Dosage: 2 MG, 1/WEEK
     Route: 042
     Dates: start: 20110516, end: 20110614
  15. LOMOTIL [Concomitant]
     Indication: PRODUCT USED FOR UNKNOWN INDICATION
     Dosage: 1 TABLET, Q4H
     Route: 048
     Dates: start: 20110622, end: 20110624
  16. COMPAZINE [Concomitant]
     Indication: NAUSEA
     Dosage: 10 MG, QID
     Dates: end: 20110624
  17. FOLIC ACID [Concomitant]
     Dosage: 3 MG, QD
     Route: 048
     Dates: start: 20110418, end: 20110624
  18. BENADRYL [Concomitant]
     Dosage: 5 ML, QID
     Route: 048
     Dates: start: 20110621, end: 20110624
  19. ALOXI [Concomitant]
     Indication: NAUSEA
     Dosage: 0.25 MG, 1/WEEK
     Route: 042
     Dates: start: 20110516, end: 20110614
  20. DIPHENHYDRAMINE HCL [Concomitant]
     Dosage: 25 MG, 1/WEEK
     Route: 042
     Dates: start: 20110516, end: 20110614
  21. FOLIC ACID [Concomitant]
     Dosage: 3 MG, QD
     Route: 048
     Dates: start: 20110418, end: 20110624
  22. AVASTIN [Suspect]
     Dosage: 410 MG, Q2W
     Route: 042
     Dates: start: 20110516, end: 20110606
  23. IRINOTECAN HCL [Suspect]
     Dosage: 250 MG, 1/WEEK
     Route: 042
     Dates: start: 20110516, end: 20110614
  24. COUMADIN [Concomitant]
     Dosage: 2 MG, QD
     Route: 048
     Dates: end: 20110624
  25. CETUXIMAB [Suspect]
     Indication: COLORECTAL CANCER
     Dosage: 800 MG, UNK
     Route: 042
     Dates: start: 20110516, end: 20110614
  26. CETUXIMAB [Suspect]
     Dosage: 500 MG, 1/WEEK
     Route: 042
     Dates: start: 20110523, end: 20110614
  27. DEXAMETHASONE [Suspect]
     Dosage: 2 MG, 1/WEEK
     Route: 042
     Dates: start: 20110516, end: 20110614
  28. FAMOTIDINE [Concomitant]
     Dosage: 20 MG, 1/WEEK
     Route: 042
     Dates: start: 20110516, end: 20110614
  29. ATROPINE [Concomitant]
     Indication: PRODUCT USED FOR UNKNOWN INDICATION
     Dosage: 0.4 MG, 1/WEEK
     Route: 040
     Dates: start: 20110516, end: 20110614

REACTIONS (1)
  - PNEUMATOSIS INTESTINALIS [None]
